FAERS Safety Report 13455960 (Version 3)
Quarter: 2017Q3

REPORT INFORMATION
  Report Type: Spontaneous
  Country: US (occurrence: US)
  Receive Date: 20170418
  Receipt Date: 20170905
  Transmission Date: 20171127
  Serious: Yes (Other)
  Sender: FDA-Public Use
  Company Number: US-MALLINCKRODT-T201700967

PATIENT
  Age: 48 Year
  Sex: Female

DRUGS (9)
  1. ALLEGRA [Concomitant]
     Active Substance: FEXOFENADINE HYDROCHLORIDE
     Indication: HYPERSENSITIVITY
  2. H.P. ACTHAR [Suspect]
     Active Substance: CORTICOTROPIN
     Indication: TEMPORAL ARTERITIS
     Dosage: 16-24 UNITS
     Route: 058
  3. H.P. ACTHAR [Suspect]
     Active Substance: CORTICOTROPIN
     Dosage: 80 UNITS, TWICE WEEKLY
     Route: 058
     Dates: start: 201701
  4. H.P. ACTHAR [Suspect]
     Active Substance: CORTICOTROPIN
     Dosage: 100 CC DEPOT
     Route: 058
     Dates: start: 20161220, end: 20170712
  5. FENOFIBRATE. [Concomitant]
     Active Substance: FENOFIBRATE
     Indication: BLOOD TRIGLYCERIDES ABNORMAL
  6. H.P. ACTHAR [Suspect]
     Active Substance: CORTICOTROPIN
     Indication: RHEUMATOID ARTHRITIS
     Dosage: 80 UNITS, TWICE WEEKLY
     Route: 058
     Dates: start: 20161220
  7. H.P. ACTHAR [Suspect]
     Active Substance: CORTICOTROPIN
     Dosage: UP TO 32 UNITS
     Route: 058
  8. TIZANIDINE. [Concomitant]
     Active Substance: TIZANIDINE
     Indication: MUSCLE RELAXANT THERAPY
  9. HYDROCODONE [Concomitant]
     Active Substance: HYDROCODONE
     Indication: PAIN MANAGEMENT

REACTIONS (18)
  - Discomfort [Unknown]
  - Colour blindness [Unknown]
  - Cushingoid [Not Recovered/Not Resolved]
  - Blood glucose increased [Unknown]
  - Anxiety [Unknown]
  - Cough [Not Recovered/Not Resolved]
  - Muscle spasms [Not Recovered/Not Resolved]
  - Head discomfort [Not Recovered/Not Resolved]
  - Asthenia [Unknown]
  - Glucose tolerance impaired [Unknown]
  - Depression [Unknown]
  - Product storage error [Not Recovered/Not Resolved]
  - Drug ineffective [Not Recovered/Not Resolved]
  - Suicidal ideation [Not Recovered/Not Resolved]
  - Vision blurred [Not Recovered/Not Resolved]
  - Hypertension [Not Recovered/Not Resolved]
  - Intentional underdose [Not Recovered/Not Resolved]
  - Injection site bruising [Not Recovered/Not Resolved]

NARRATIVE: CASE EVENT DATE: 201612
